FAERS Safety Report 7293590-5 (Version None)
Quarter: 2011Q1

REPORT INFORMATION
  Report Type: 
  Country: None (occurrence: None)
  Receive Date: 20110215
  Receipt Date: 20110211
  Transmission Date: 20110831
  Serious: Yes (Death, Hospitalization)
  Sender: FDA-Public Use
  Company Number: A0695896A

PATIENT
  Age: 30 Year
  Sex: Male
  Weight: 104.5 kg

DRUGS (4)
  1. AVANDIA [Suspect]
     Dosage: 8MG TWICE PER DAY
     Route: 048
     Dates: start: 20040901, end: 20051001
  2. GLUCOPHAGE [Concomitant]
     Dates: start: 20041001, end: 20050201
  3. DIABETA [Concomitant]
     Dates: start: 20050901, end: 20070401
  4. METFORMIN [Concomitant]
     Dates: start: 20040901, end: 20060601

REACTIONS (6)
  - MYOCARDIAL INFARCTION [None]
  - DEATH [None]
  - DECREASED ACTIVITY [None]
  - CARDIAC FAILURE CONGESTIVE [None]
  - ANGINA PECTORIS [None]
  - RENAL FAILURE [None]
